FAERS Safety Report 5691319-5 (Version None)
Quarter: 2008Q1

REPORT INFORMATION
  Report Type: 
  Country: None (occurrence: None)
  Receive Date: 20080331
  Receipt Date: 20080318
  Transmission Date: 20080703
  Serious: Yes (Other)
  Sender: FDA-Public Use
  Company Number: B0513332A

PATIENT
  Age: 36 Year
  Sex: Female

DRUGS (10)
  1. MELPHALAN (FORMULATION UNKNOWN) (GENERIC) (MELPHALAN) [Suspect]
     Indication: BONE MARROW TRANSPLANT
  2. ALEMTUZUMAB (FORMULATION UNKNOWN) (ALEMTUZUMAB) [Suspect]
     Indication: BONE MARROW TRANSPLANT
  3. FLUDARABINE PHOSPHATE [Suspect]
     Indication: BONE MARROW TRANSPLANT
  4. CYCLOSPORINE [Concomitant]
  5. METHOTREXATE [Concomitant]
  6. METHYLPREDNISOLONE [Concomitant]
  7. GRANULOCYTE COL. STIM. FACT [Concomitant]
  8. FLUCONAZOLE [Concomitant]
  9. VORICONAZOLE [Concomitant]
  10. ANTIBIOTICS [Concomitant]

REACTIONS (1)
  - VENOOCCLUSIVE LIVER DISEASE [None]
